FAERS Safety Report 12153277 (Version 1)
Quarter: 2016Q1

REPORT INFORMATION
  Report Type: Spontaneous
  Country: US (occurrence: US)
  Receive Date: 20160306
  Receipt Date: 20160306
  Transmission Date: 20160526
  Serious: No
  Sender: FDA-Public Use
  Company Number: US-TEVA-640297USA

PATIENT
  Age: 63 Year
  Sex: Female
  Weight: 64.92 kg

DRUGS (5)
  1. ATENOLOL. [Concomitant]
     Active Substance: ATENOLOL
  2. LISINOPRIL. [Concomitant]
     Active Substance: LISINOPRIL
  3. GRANIX [Suspect]
     Active Substance: TBO-FILGRASTIM
     Indication: PROPHYLAXIS
  4. PACLITAXEL W/CARBOPLATIN [Concomitant]
  5. GRANIX [Suspect]
     Active Substance: TBO-FILGRASTIM
     Indication: INFECTION PROPHYLAXIS
     Route: 065
     Dates: start: 20160222

REACTIONS (2)
  - Activities of daily living impaired [Not Recovered/Not Resolved]
  - Fatigue [Not Recovered/Not Resolved]

NARRATIVE: CASE EVENT DATE: 20160226
